FAERS Safety Report 20155692 (Version 1)
Quarter: 2021Q4

REPORT INFORMATION
  Report Type: Spontaneous
  Country: US (occurrence: None)
  Receive Date: 20211206
  Receipt Date: 20211206
  Transmission Date: 20220303
  Serious: Yes (Other)
  Sender: FDA-Public Use
  Company Number: None

PATIENT
  Age: 35 Year
  Sex: Male
  Weight: 78.75 kg

DRUGS (2)
  1. .DELTA.8-TETRAHYDROCANNABINOL\HERBALS [Suspect]
     Active Substance: .DELTA.8-TETRAHYDROCANNABINOL\HERBALS
     Indication: Anxiety
     Dosage: OTHER QUANTITY : 1 GUMMY;?
     Route: 048
     Dates: start: 20211203, end: 20211203
  2. CLARITIN [Concomitant]
     Active Substance: LORATADINE

REACTIONS (6)
  - Poisoning [None]
  - Reactive psychosis [None]
  - Panic attack [None]
  - Hallucination [None]
  - Vomiting [None]
  - Heart rate increased [None]

NARRATIVE: CASE EVENT DATE: 20211203
